FAERS Safety Report 9841258 (Version 1)
Quarter: 2013Q4

REPORT INFORMATION
  Report Type: Spontaneous
  Country: US (occurrence: None)
  Receive Date: 20131219
  Receipt Date: 20131219
  Transmission Date: 20140711
  Serious: Yes (Life-Threatening, Hospitalization, Other)
  Sender: FDA-Public Use
  Company Number: 163-20785-12102460

PATIENT
  Age: 60 Year
  Sex: Female

DRUGS (13)
  1. THALOMID [Suspect]
     Indication: PLASMA CELL MYELOMA
     Route: 048
     Dates: start: 201107
  2. DEXAMETHASONE (DEXAMETHASONE) [Concomitant]
  3. CISPLATIN (CISPLATIN) [Concomitant]
  4. ADRIAMYCIN (DOXORUBICIN) [Concomitant]
  5. CYCLOPHOSPHAMIDE (CYCLOPHOSPHAMIDE) [Concomitant]
  6. ETOPOSIDE (ETOPOSIDE) [Concomitant]
  7. ACYCLOVIR (ACICLOVIR) [Concomitant]
  8. FLORINEF (FLUDROCORTISONE ACETATE) [Concomitant]
  9. CLARITIN (LORATADINE) [Concomitant]
  10. METHADONE (METHADONE) [Concomitant]
  11. PREDNISONE (PREDNISONE) [Concomitant]
  12. PREVACID (LANSOPRAZOLE) [Concomitant]
  13. ZOFRAN (ONDANSETRON HYDROCHLORIDE) [Concomitant]

REACTIONS (2)
  - Klebsiella sepsis [None]
  - Febrile neutropenia [None]
